FAERS Safety Report 5479380-4 (Version None)
Quarter: 2007Q4

REPORT INFORMATION
  Report Type: 
  Country: None (occurrence: None)
  Receive Date: 20071008
  Receipt Date: 20070925
  Transmission Date: 20080405
  Serious: No
  Sender: FDA-Public Use
  Company Number: CA-AMGEN-KDL236966

PATIENT
  Sex: Female
  Weight: 65 kg

DRUGS (3)
  1. ENBREL [Suspect]
     Indication: RHEUMATOID ARTHRITIS
     Route: 058
     Dates: start: 20070508
  2. PREDNISONE [Concomitant]
     Dates: start: 20070417
  3. NAPROSYN [Concomitant]

REACTIONS (1)
  - NEUROPATHY PERIPHERAL [None]
